FAERS Safety Report 6311935-7 (Version None)
Quarter: 2009Q3

REPORT INFORMATION
  Report Type: 
  Country: None (occurrence: None)
  Receive Date: 20090817
  Receipt Date: 20090514
  Transmission Date: 20100115
  Serious: Yes (Other)
  Sender: FDA-Public Use
  Company Number: US-BRISTOL-MYERS SQUIBB COMPANY-14254163

PATIENT
  Age: 50 Year
  Sex: Female
  Weight: 107 kg

DRUGS (13)
  1. ESTRACE [Suspect]
     Indication: HORMONE REPLACEMENT THERAPY
     Dates: start: 19920101
  2. PROVERA [Suspect]
     Indication: HORMONE REPLACEMENT THERAPY
     Dates: start: 19920101
  3. PREMPRO [Suspect]
     Indication: HORMONE REPLACEMENT THERAPY
     Dates: start: 19950101, end: 20010701
  4. CLARITIN-D [Concomitant]
     Route: 048
  5. CLARITIN [Concomitant]
     Dosage: CLARITIN OCCASSIONALLY 10MG QHS
  6. BECONASE [Concomitant]
     Dosage: 1 DF=TWO SQUIRTS IN EACH NOSTRIL ONCE A DAY TO TWICE A DAY
  7. ADVIL [Concomitant]
     Indication: PAIN
  8. ADVIL [Concomitant]
     Indication: TINNITUS
  9. NABUMETONE [Concomitant]
     Indication: PAIN
  10. MULTI-VITAMIN [Concomitant]
  11. PEPCID [Concomitant]
  12. ZANTAC [Concomitant]
  13. PROZAC [Concomitant]

REACTIONS (1)
  - BREAST CANCER [None]
